FAERS Safety Report 11050233 (Version 1)
Quarter: 2015Q2

REPORT INFORMATION
  Report Type: Spontaneous
  Country: US (occurrence: US)
  Receive Date: 20150421
  Receipt Date: 20150421
  Transmission Date: 20150821
  Serious: No
  Sender: FDA-Public Use
  Company Number: US-ASTRAZENECA-2015SE35274

PATIENT
  Sex: Female

DRUGS (2)
  1. PULMICORT RESPULES [Suspect]
     Active Substance: BUDESONIDE
     Indication: ASTHMA
     Route: 055
  2. PULMICORT RESPULES [Suspect]
     Active Substance: BUDESONIDE
     Indication: ASTHMA
     Dosage: GENERIC
     Route: 055

REACTIONS (2)
  - Reaction to drug excipients [Unknown]
  - Product use issue [Unknown]
